FAERS Safety Report 6220261-6 (Version None)
Quarter: 2009Q2

REPORT INFORMATION
  Report Type: 
  Country: None (occurrence: None)
  Receive Date: 20090605
  Receipt Date: 20090526
  Transmission Date: 20091009
  Serious: Yes (Life-Threatening)
  Sender: FDA-Public Use
  Company Number: 2009-197732-NL

PATIENT

DRUGS (1)
  1. ROCURONIUM BROMIDE [Suspect]

REACTIONS (1)
  - ENDOTRACHEAL INTUBATION COMPLICATION [None]
